FAERS Safety Report 8875227 (Version 1)
Quarter: 2012Q4

REPORT INFORMATION
  Report Type: 
  Country: US (occurrence: US)
  Receive Date: 20121026
  Receipt Date: 20121026
  Transmission Date: 20130627
  Serious: No
  Sender: FDA-Public Use
  Company Number: US-AMGEN-USASP2012044854

PATIENT
  Age: 47 Year
  Sex: Female

DRUGS (7)
  1. ENBREL [Suspect]
     Indication: PRODUCT USED FOR UNKNOWN INDICATION
     Dosage: 50 mg, qwk
     Route: 058
  2. HYDROXYZINE [Concomitant]
     Dosage: 50 mg, UNK
  3. RIBAPAK [Concomitant]
     Dosage: 800 / day
  4. PEGASYS [Concomitant]
     Dosage: 180 mug, UNK
  5. WELLBUTRIN [Concomitant]
     Dosage: 150 mg, UNK
  6. TRAZODONE [Concomitant]
     Dosage: 100 mg, UNK
  7. LEVOTHYROXIN [Concomitant]
     Dosage: 112 mug, UNK

REACTIONS (1)
  - Laryngitis [Unknown]
